FAERS Safety Report 5521184-8 (Version None)
Quarter: 2007Q4

REPORT INFORMATION
  Report Type: 
  Country: None (occurrence: None)
  Receive Date: 20071119
  Receipt Date: 20071109
  Transmission Date: 20080405
  Serious: Yes (Other)
  Sender: FDA-Public Use
  Company Number: US-ELI_LILLY_AND_COMPANY-US200711002468

PATIENT
  Age: 55 Year
  Sex: Male

DRUGS (5)
  1. XIGRIS [Suspect]
     Indication: SEPSIS
     Dosage: 24 D/F, UNK
     Route: 042
     Dates: start: 20071107, end: 20071101
  2. VASOPRESSIN [Concomitant]
  3. VANCOMYCIN [Concomitant]
     Indication: PNEUMOCOCCAL INFECTION
  4. LEVAQUIN [Concomitant]
     Indication: PNEUMOCOCCAL INFECTION
  5. FRAGMIN [Concomitant]
     Dates: start: 20071101

REACTIONS (1)
  - PLATELET COUNT DECREASED [None]
